FAERS Safety Report 10581836 (Version 2)
Quarter: 2014Q4

REPORT INFORMATION
  Report Type: Spontaneous
  Country: JP (occurrence: JP)
  Receive Date: 20141113
  Receipt Date: 20141113
  Transmission Date: 20150529
  Serious: Yes (Other)
  Sender: FDA-Public Use
  Company Number: PHHY2013JP159481

PATIENT
  Age: 66 Year
  Sex: Male
  Weight: 64 kg

DRUGS (10)
  1. EXJADE [Suspect]
     Active Substance: DEFERASIROX
     Indication: APLASTIC ANAEMIA
     Dosage: 500 MG, QD
     Route: 048
     Dates: start: 20120904, end: 20130205
  2. EXJADE [Suspect]
     Active Substance: DEFERASIROX
     Dosage: 500 MG, 3 TABS WEEKLY
     Route: 048
     Dates: start: 20130319, end: 20131029
  3. EXJADE [Suspect]
     Active Substance: DEFERASIROX
     Dosage: 500 MG, 5 TABS WEEKLY
     Route: 048
     Dates: start: 20131029, end: 20140121
  4. EXJADE [Suspect]
     Active Substance: DEFERASIROX
     Dosage: 500 MG, 5 TABS WEEKLY
     Route: 048
     Dates: start: 20140520
  5. MYSLEE [Concomitant]
     Active Substance: ZOLPIDEM TARTRATE
     Indication: INSOMNIA
     Dosage: 5 MG, UNK
     Route: 048
     Dates: start: 20120319
  6. PRIMOBOLAN-DEPOT [Concomitant]
     Active Substance: METHENOLONE ENANTHATE
     Indication: IMMUNOSUPPRESSION
     Dosage: 30 MG, UNK
     Route: 048
     Dates: start: 20120814
  7. DIOVAN [Concomitant]
     Active Substance: VALSARTAN
     Indication: HYPERTENSION
     Dosage: 40 MG, UNK
     Route: 048
     Dates: start: 20120105
  8. EXJADE [Suspect]
     Active Substance: DEFERASIROX
     Dosage: 500 MG, QD
     Route: 048
     Dates: start: 20140121, end: 20140520
  9. GASMOTIN [Concomitant]
     Active Substance: MOSAPRIDE CITRATE
     Indication: DECREASED APPETITE
     Dosage: 15 MG, UNK
     Route: 048
     Dates: start: 20120503
  10. MAGNESIUM OXIDE. [Suspect]
     Active Substance: MAGNESIUM OXIDE
     Indication: CONSTIPATION
     Dosage: 1.5 MG, DAILY
     Route: 048
     Dates: start: 20120105

REACTIONS (2)
  - Renal disorder [Not Recovered/Not Resolved]
  - Blood creatinine increased [Unknown]

NARRATIVE: CASE EVENT DATE: 20130205
